FAERS Safety Report 20998500 (Version 2)
Quarter: 2022Q3

REPORT INFORMATION
  Report Type: Report from Study
  Country: US (occurrence: US)
  Receive Date: 20220623
  Receipt Date: 20220720
  Transmission Date: 20221027
  Serious: Yes (Hospitalization, Other)
  Sender: FDA-Public Use
  Company Number: US-BRISTOL-MYERS SQUIBB COMPANY-2022-043871

PATIENT
  Age: 57 Year
  Sex: Male

DRUGS (23)
  1. ROMIDEPSIN [Suspect]
     Active Substance: ROMIDEPSIN
     Indication: Allogenic stem cell transplantation
     Dosage: 5.05 MG, FREQUENCY: DAILY
     Route: 042
     Dates: start: 20220223, end: 20220226
  2. ENTRESTO [Suspect]
     Active Substance: SACUBITRIL\VALSARTAN
     Indication: Cardiac failure
     Dosage: 24-26 MG 2 TIMES DAILY
     Route: 048
     Dates: start: 20220504, end: 20220514
  3. TACROLIMUS [Concomitant]
     Active Substance: TACROLIMUS
     Indication: Product used for unknown indication
     Dosage: ONGOING
     Route: 065
     Dates: start: 20220227
  4. ACYCLOVIR [Concomitant]
     Active Substance: ACYCLOVIR
     Indication: Prophylaxis
     Route: 048
     Dates: start: 20220514, end: 20220517
  5. FLUCONAZOLE [Concomitant]
     Active Substance: FLUCONAZOLE
     Indication: Prophylaxis
     Route: 048
     Dates: start: 20220309
  6. ATOVAQUONE [Concomitant]
     Active Substance: ATOVAQUONE
     Indication: Prophylaxis
     Route: 048
     Dates: start: 20220514
  7. SIROLIMUS [Concomitant]
     Active Substance: SIROLIMUS
     Indication: Graft versus host disease
     Dosage: 1.5 MG DAILY
  8. BUDESONIDE [Concomitant]
     Active Substance: BUDESONIDE
     Indication: Graft versus host disease
     Route: 048
     Dates: start: 20220401
  9. BECLOMETHASONE [Concomitant]
     Active Substance: BECLOMETHASONE
     Indication: Asthma
     Route: 055
  10. DAPSONE [Concomitant]
     Active Substance: DAPSONE
     Indication: Prophylaxis
     Route: 048
     Dates: start: 20220308
  11. FLUTICASONE PROPIONATE [Concomitant]
     Active Substance: FLUTICASONE PROPIONATE
     Indication: Asthma
     Route: 055
     Dates: start: 20220331
  12. HYDRALAZINE HCL [Concomitant]
     Active Substance: HYDRALAZINE HYDROCHLORIDE
     Indication: Hypertension
     Route: 048
     Dates: start: 20220404
  13. LORATADINE [Concomitant]
     Active Substance: LORATADINE
     Indication: Hypersensitivity
     Route: 048
     Dates: start: 20220331
  14. METOPROLOL SUCCINATE [Concomitant]
     Active Substance: METOPROLOL SUCCINATE
     Indication: Hypertension
     Route: 048
     Dates: start: 20220330
  15. MYCOPHENOLATE MOFETIL [Concomitant]
     Active Substance: MYCOPHENOLATE MOFETIL
     Indication: Prophylaxis
     Route: 048
     Dates: start: 20220403
  16. OLANZAPINE AN [Concomitant]
     Indication: Insomnia
     Dosage: AT BEDTIME
     Route: 048
     Dates: start: 20220325
  17. ONDANSETRON [Concomitant]
     Active Substance: ONDANSETRON
     Indication: Vomiting
     Dosage: PRN NAUSEA
     Route: 048
     Dates: start: 20220223
  18. PROCHLORPERAZINE [Concomitant]
     Active Substance: PROCHLORPERAZINE
     Indication: Vomiting
     Dosage: AS NEEDED
     Route: 048
     Dates: start: 20220223
  19. SIROLIMUS [Concomitant]
     Active Substance: SIROLIMUS
     Indication: Prophylaxis
     Route: 048
     Dates: start: 20220403
  20. FLOMAX [Concomitant]
     Active Substance: TAMSULOSIN HYDROCHLORIDE
     Indication: Urine flow decreased
     Route: 048
     Dates: start: 20220403
  21. TORSEMIDE [Concomitant]
     Active Substance: TORSEMIDE
     Indication: Diuretic therapy
     Route: 048
     Dates: start: 20220405
  22. TRAZODONE [Concomitant]
     Active Substance: TRAZODONE HYDROCHLORIDE
     Indication: Insomnia
     Dosage: AT BEDTIME
     Route: 048
  23. URSODIOL [Concomitant]
     Active Substance: URSODIOL
     Indication: Prophylaxis
     Route: 048
     Dates: start: 20220216

REACTIONS (2)
  - Diarrhoea [Recovered/Resolved]
  - Graft versus host disease [Not Recovered/Not Resolved]

NARRATIVE: CASE EVENT DATE: 20220514
